FAERS Safety Report 8361386-9 (Version None)
Quarter: 2012Q2

REPORT INFORMATION
  Report Type: 
  Country: None (occurrence: None)
  Receive Date: 20120515
  Receipt Date: 20120510
  Transmission Date: 20120825
  Serious: Yes (Other)
  Sender: FDA-Public Use
  Company Number: JP-BAYER-2012-046607

PATIENT
  Age: 59 Year
  Sex: Male
  Weight: 111 kg

DRUGS (9)
  1. SORAFENIB (RAF KINASE INHIBITOR) [Suspect]
     Indication: HEPATIC NEOPLASM MALIGNANT
     Dosage: DAILY DOSE 400 MG
     Route: 048
     Dates: start: 20111222
  2. AMARYL [Concomitant]
     Dosage: DAILY DOSE 1 MG
     Route: 048
     Dates: start: 20111217, end: 20111221
  3. HUMALOG [Concomitant]
     Dosage: DAILY DOSE 12 U
     Route: 058
     Dates: start: 20111222, end: 20111225
  4. LASIX [Concomitant]
     Indication: ASCITES
     Dosage: DAILY DOSE 20 MG
     Route: 048
     Dates: start: 20111224, end: 20111226
  5. TRICHLORMETHIAZIDE [Concomitant]
     Indication: ASCITES
     Dosage: DAILY DOSE 2 MG
     Route: 048
     Dates: start: 20111227
  6. LIVACT [Concomitant]
     Dosage: DAILY DOSE 12.45 G
     Route: 048
     Dates: start: 20120215
  7. LANTUS [Concomitant]
     Dosage: DAILY DOSE 4 U
     Route: 058
     Dates: start: 20111222, end: 20111225
  8. AMLODIPINE BESILATE [Concomitant]
     Dosage: DAILY DOSE 5 MG
     Route: 048
     Dates: start: 20111222
  9. SITAGLIPTIN PHOSPHATE [Concomitant]
     Dosage: DAILY DOSE 50 MG
     Route: 048
     Dates: start: 20111226

REACTIONS (8)
  - AMMONIA INCREASED [None]
  - DIARRHOEA [None]
  - CONSTIPATION [None]
  - BACK PAIN [None]
  - PROTEIN TOTAL INCREASED [None]
  - ABDOMINAL PAIN [None]
  - LYMPHOCYTE COUNT DECREASED [None]
  - ASCITES [None]
